FAERS Safety Report 7751606-3 (Version None)
Quarter: 2011Q3

REPORT INFORMATION
  Report Type: 
  Country: None (occurrence: None)
  Receive Date: 20110914
  Receipt Date: 20110912
  Transmission Date: 20111222
  Serious: Yes (Death, Other)
  Sender: FDA-Public Use
  Company Number: PHHY2011US69055

PATIENT
  Sex: Male
  Weight: 70.295 kg

DRUGS (11)
  1. LASIX [Concomitant]
     Dosage: 20 MG, DAILY
     Route: 048
  2. IBUPROFEN [Concomitant]
     Dosage: 200 MG, UNK
     Route: 048
  3. STOOL SOFTENER [Concomitant]
     Dosage: 100 MG, UNK
  4. LAXATIVES [Concomitant]
     Dosage: 5 MG, EVERY OTHER DAY
  5. EXJADE [Suspect]
     Indication: ACUTE MYELOID LEUKAEMIA
     Dosage: 1500 MG, DAILY
     Route: 048
     Dates: start: 20100927
  6. HYDROXYUREA [Concomitant]
     Dosage: EVERY OTHER DAY
     Route: 048
  7. COLACE [Concomitant]
  8. ALPRAZOLAM [Concomitant]
     Dosage: 25 MG, UNK
  9. VITAMIN B6 [Concomitant]
     Dosage: 50 MG, TID
  10. FOLIC ACID [Concomitant]
     Dosage: 1 MG, DAILY
     Route: 048
  11. ACETAMINOPHEN [Concomitant]
     Dosage: 500 MG, UNK
     Route: 048

REACTIONS (17)
  - RENAL IMPAIRMENT [None]
  - BLOOD LACTATE DEHYDROGENASE INCREASED [None]
  - ARTHRALGIA [None]
  - DEPRESSION [None]
  - GAIT DISTURBANCE [None]
  - SENSORY DISTURBANCE [None]
  - PALLOR [None]
  - MULTI-ORGAN FAILURE [None]
  - HYDROCEPHALUS [None]
  - BLOOD CREATININE INCREASED [None]
  - BRADYCARDIA [None]
  - OEDEMA [None]
  - FATIGUE [None]
  - MEMORY IMPAIRMENT [None]
  - BLOOD GLUCOSE INCREASED [None]
  - RENAL FAILURE [None]
  - BLOOD UREA INCREASED [None]
